FAERS Safety Report 25069361 (Version 5)
Quarter: 2025Q2

REPORT INFORMATION
  Report Type: Spontaneous
  Country: JP (occurrence: JP)
  Receive Date: 20250312
  Receipt Date: 20250513
  Transmission Date: 20250717
  Serious: Yes (Death, Other)
  Sender: OTSUKA
  Company Number: JP-MMM-Otsuka-6CKNLW82

PATIENT
  Age: 84 Year
  Sex: Female

DRUGS (5)
  1. REXULTI [Suspect]
     Active Substance: BREXPIPRAZOLE
     Indication: Dementia Alzheimer^s type
     Dosage: 2 MG/DAY
     Route: 048
     Dates: start: 20241113, end: 20241126
  2. REXULTI [Suspect]
     Active Substance: BREXPIPRAZOLE
     Indication: Irritability
     Dosage: 0.5 MG/DAY
     Route: 048
     Dates: start: 20241031, end: 20241106
  3. REXULTI [Suspect]
     Active Substance: BREXPIPRAZOLE
     Indication: Aggression
     Dosage: 1 MG/DAY
     Route: 048
     Dates: start: 20241107, end: 20241112
  4. REXULTI [Suspect]
     Active Substance: BREXPIPRAZOLE
     Indication: Agitation
     Dosage: 1 MG/DAY
     Route: 048
     Dates: start: 20241127, end: 20241202
  5. REXULTI [Suspect]
     Active Substance: BREXPIPRAZOLE
     Indication: Aggression

REACTIONS (6)
  - Loss of personal independence in daily activities [Fatal]
  - Marasmus [Fatal]
  - Epilepsy [Unknown]
  - Cerebral haemorrhage [Unknown]
  - Pyrexia [Unknown]
  - Urinary tract infection [Unknown]

NARRATIVE: CASE EVENT DATE: 20241106
